FAERS Safety Report 18163808 (Version 1)
Quarter: 2020Q3

REPORT INFORMATION
  Report Type: Spontaneous
  Country: US (occurrence: US)
  Receive Date: 20200818
  Receipt Date: 20200818
  Transmission Date: 20201103
  Serious: No
  Sender: FDA-Public Use
  Company Number: US-OTSUKA-2019_022225

PATIENT
  Age: 20 Year
  Sex: Male

DRUGS (1)
  1. ARIPIPRAZOLE. [Suspect]
     Active Substance: ARIPIPRAZOLE
     Indication: PRODUCT USED FOR UNKNOWN INDICATION
     Dosage: UNK
     Route: 065

REACTIONS (10)
  - Blood pressure fluctuation [Unknown]
  - Pollakiuria [Unknown]
  - Asthenia [Unknown]
  - Hypoaesthesia [Unknown]
  - Somnolence [Unknown]
  - Faeces discoloured [Unknown]
  - Dizziness [Unknown]
  - Insomnia [Unknown]
  - Ocular hyperaemia [Unknown]
  - Nausea [Unknown]
